FAERS Safety Report 6282535-2 (Version None)
Quarter: 2009Q3

REPORT INFORMATION
  Report Type: 
  Country: None (occurrence: None)
  Receive Date: 20090724
  Receipt Date: 20090713
  Transmission Date: 20100115
  Serious: Yes (Other)
  Sender: FDA-Public Use
  Company Number: US-WATSON-2009-05416

PATIENT
  Age: 17 Year
  Sex: Male

DRUGS (4)
  1. DIPHENHYDRAMINE HCL [Suspect]
     Indication: INSOMNIA
     Dosage: UNK
  2. VENLAFAXINE HYDROCHLORIDE [Suspect]
     Indication: DEPRESSION
     Dosage: 37.5 MG 1-3TIMES PER DAY
  3. LAMOTRIGINE [Suspect]
     Indication: DEPRESSION
     Dosage: UNK
  4. ELETRIPTAN [Suspect]
     Indication: MIGRAINE

REACTIONS (1)
  - HALLUCINATION, VISUAL [None]
